FAERS Safety Report 12740621 (Version 2)
Quarter: 2016Q4

REPORT INFORMATION
  Report Type: Report from Study
  Country: FR (occurrence: FR)
  Receive Date: 20160914
  Receipt Date: 20161013
  Transmission Date: 20170207
  Serious: Yes (Hospitalization, Other)
  Sender: FDA-Public Use
  Company Number: FR-ROCHE-1829331

PATIENT

DRUGS (6)
  1. CARBOPLATINO [Suspect]
     Active Substance: CARBOPLATIN
     Indication: OVARIAN EPITHELIAL CANCER
     Dosage: MOST RECENT TREATMENT DATE: 17/AUG/2016
     Route: 065
     Dates: start: 20160817
  2. ONDANSETRON [Concomitant]
     Active Substance: ONDANSETRON
  3. VITAMIN D3 [Concomitant]
     Active Substance: CHOLECALCIFEROL
  4. ASPIRIN CARDIO 100 [Concomitant]
     Active Substance: ASPIRIN
  5. BEVACIZUMAB [Suspect]
     Active Substance: BEVACIZUMAB
     Indication: OVARIAN EPITHELIAL CANCER
     Dosage: MOST RECENT TREATMENT DATE: 17/AUG/2016
     Route: 042
     Dates: start: 20160817
  6. GEMCITABINE [Suspect]
     Active Substance: GEMCITABINE\GEMCITABINE HYDROCHLORIDE
     Indication: OVARIAN EPITHELIAL CANCER
     Dosage: MOST RECENT TREATMENT DATE: 17/AUG/2016
     Route: 065
     Dates: start: 20160817

REACTIONS (1)
  - General physical health deterioration [Recovered/Resolved]

NARRATIVE: CASE EVENT DATE: 20160821
